FAERS Safety Report 9727089 (Version 1)
Quarter: 2013Q4

REPORT INFORMATION
  Report Type: Spontaneous
  Country: CN (occurrence: CN)
  Receive Date: 20131203
  Receipt Date: 20131203
  Transmission Date: 20140711
  Serious: Yes (Other)
  Sender: FDA-Public Use
  Company Number: CN-BRISTOL-MYERS SQUIBB COMPANY-19870286

PATIENT
  Sex: 0

DRUGS (1)
  1. BARACLUDE [Suspect]

REACTIONS (1)
  - Renal cell carcinoma [Unknown]
